FAERS Safety Report 5289646-9 (Version None)
Quarter: 2007Q2

REPORT INFORMATION
  Report Type: 
  Country: None (occurrence: None)
  Receive Date: 20070406
  Receipt Date: 20070330
  Transmission Date: 20071010
  Serious: Yes (Hospitalization)
  Sender: FDA-Public Use
  Company Number: AT-MERCK-0704AUT00001

PATIENT
  Age: 60 Year
  Sex: Female

DRUGS (8)
  1. HYZAAR [Suspect]
     Indication: HYPERTENSION
     Route: 048
  2. HYZAAR [Suspect]
     Route: 048
  3. COZAAR [Concomitant]
     Indication: HYPERTENSION
     Route: 048
  4. COZAAR [Concomitant]
     Route: 048
  5. CARVEDILOL [Concomitant]
     Route: 065
  6. ZANIDIP [Concomitant]
     Indication: HYPERTENSION
     Route: 048
  7. GABAPENTIN [Concomitant]
     Route: 065
  8. TRILEPTAL [Concomitant]
     Indication: EPILEPSY
     Route: 065

REACTIONS (2)
  - BLOOD SODIUM ABNORMAL [None]
  - EPILEPSY [None]
